FAERS Safety Report 4560143-9 (Version None)
Quarter: 2005Q1

REPORT INFORMATION
  Report Type: 
  Country: None (occurrence: None)
  Receive Date: 20050120
  Receipt Date: 20050120
  Transmission Date: 20050727
  Serious: Yes (Hospitalization)
  Sender: FDA-Public Use
  Company Number: None

PATIENT
  Age: 78 Year
  Sex: Female
  Weight: 58.0604 kg

DRUGS (1)
  1. ENALAPRIL MALEATE [Suspect]

REACTIONS (1)
  - HOSPITALISATION [None]
